FAERS Safety Report 22640263 (Version 1)
Quarter: 2023Q2

REPORT INFORMATION
  Report Type: Spontaneous
  Country: US (occurrence: None)
  Receive Date: 20230623
  Receipt Date: 20230623
  Transmission Date: 20230721
  Serious: Yes (Death)
  Sender: FDA-Public Use
  Company Number: None

PATIENT
  Age: 81 Year
  Sex: Male

DRUGS (2)
  1. LENALIDOMIDE [Suspect]
     Active Substance: LENALIDOMIDE
     Indication: Plasma cell myeloma
     Dosage: FREQUENCY : DAILY;?
     Route: 048
     Dates: start: 20220831, end: 20230616
  2. BORTEZOMIB [Concomitant]
     Active Substance: BORTEZOMIB

REACTIONS (10)
  - Oedema peripheral [None]
  - Fall [None]
  - Hypotension [None]
  - Cough [None]
  - Hypoxia [None]
  - Pneumonia [None]
  - Pain [None]
  - Limb injury [None]
  - Fracture blisters [None]
  - Ischaemia [None]

NARRATIVE: CASE EVENT DATE: 20230621
